FAERS Safety Report 6873330-1 (Version None)
Quarter: 2010Q3

REPORT INFORMATION
  Report Type: 
  Country: None (occurrence: None)
  Receive Date: 20100723
  Receipt Date: 20090310
  Transmission Date: 20110219
  Serious: Yes (Other)
  Sender: FDA-Public Use
  Company Number: US-PFIZER INC-2008153157

PATIENT
  Sex: Female
  Weight: 52.62 kg

DRUGS (3)
  1. CHANTIX [Suspect]
     Indication: SMOKING CESSATION THERAPY
     Dosage: 1 MG, 2X/DAY
     Dates: start: 20081101, end: 20081203
  2. INHALED HUMAN INSULIN [Concomitant]
     Indication: DIABETES MELLITUS
     Dosage: UNK
  3. DRUG, UNSPECIFIED [Concomitant]
     Indication: DISABILITY
     Dosage: UNK

REACTIONS (5)
  - ABDOMINAL DISCOMFORT [None]
  - ABDOMINAL PAIN [None]
  - DIARRHOEA [None]
  - STENT PLACEMENT [None]
  - VOMITING [None]
